FAERS Safety Report 15425130 (Version 1)
Quarter: 2018Q4

REPORT INFORMATION
  Report Type: Spontaneous
  Country: US (occurrence: US)
  Receive Date: 20180925
  Receipt Date: 20180925
  Transmission Date: 20190204
  Serious: No
  Sender: FDA-Public Use
  Company Number: US-THERAPEUTICSMD-2018TMD00078

PATIENT
  Age: 57 Year
  Sex: Female
  Weight: 46.26 kg

DRUGS (3)
  1. IMVEXXY [Suspect]
     Active Substance: ESTRADIOL
     Indication: SEXUAL DYSFUNCTION
     Dosage: 10 ?G, 2X/WEEK (1 HOUR BEFORE BEDTIME)
     Route: 067
     Dates: start: 20180711, end: 20180714
  2. IMVEXXY [Suspect]
     Active Substance: ESTRADIOL
     Dosage: 10 ?G, 2X/WEEK (1 HOUR BEFORE BEDTIME)
     Route: 067
     Dates: start: 20180725, end: 20180728
  3. LOSARTAN. [Concomitant]
     Active Substance: LOSARTAN
     Dosage: 100 MG, 1X/DAY IN THE MORNING

REACTIONS (8)
  - Feeling abnormal [Recovered/Resolved]
  - Hyperhidrosis [Recovered/Resolved]
  - Insomnia [Recovered/Resolved]
  - Dizziness [Recovered/Resolved]
  - Tachycardia [Recovered/Resolved]
  - Vertigo [Recovered/Resolved]
  - Panic attack [Recovered/Resolved]
  - Off label use [Recovered/Resolved]

NARRATIVE: CASE EVENT DATE: 20180711
